FAERS Safety Report 5591201-8 (Version None)
Quarter: 2007Q4

REPORT INFORMATION
  Report Type: 
  Country: None (occurrence: None)
  Receive Date: 20071212
  Receipt Date: 20070814
  Transmission Date: 20080405
  Serious: Yes (Disabling, Other)
  Sender: FDA-Public Use
  Company Number: USA-2007-0028792

PATIENT
  Sex: Male

DRUGS (2)
  1. OXYCONTIN [Suspect]
     Indication: PAIN
     Dates: start: 20030101, end: 20040101
  2. ALCOHOL (ETHANOL) [Suspect]
     Indication: ALCOHOL USE

REACTIONS (4)
  - DRUG DEPENDENCE [None]
  - EUPHORIC MOOD [None]
  - IMPAIRED DRIVING ABILITY [None]
  - SUBSTANCE ABUSE [None]
